FAERS Safety Report 5305769-X (Version None)
Quarter: 2007Q2

REPORT INFORMATION
  Report Type: 
  Country: None (occurrence: None)
  Receive Date: 20070424
  Receipt Date: 20070413
  Transmission Date: 20071010
  Serious: Yes (Hospitalization, Other)
  Sender: FDA-Public Use
  Company Number: JP-ELI_LILLY_AND_COMPANY-JP200703000985

PATIENT
  Age: 78 Year
  Sex: Male

DRUGS (9)
  1. GEMZAR [Suspect]
     Indication: LUNG CARCINOMA CELL TYPE UNSPECIFIED STAGE IV
     Dosage: 800 MG/M2, UNK
     Route: 042
     Dates: start: 20060822, end: 20061003
  2. RINDERON [Concomitant]
     Indication: PROPHYLAXIS
     Dosage: 8 MG, OTHER
     Route: 042
     Dates: start: 20060822, end: 20060905
  3. ADALAT [Concomitant]
     Indication: HYPERTENSION
     Dosage: 10 MG, DAILY (1/D)
     Route: 048
     Dates: start: 20060523
  4. DILTIAZEM HCL [Concomitant]
     Indication: HYPERTENSION
     Dosage: 100 MG, DAILY (1/D)
     Route: 048
     Dates: start: 20060523
  5. MAGLAX /JPN/ [Concomitant]
     Indication: CONSTIPATION
     Dosage: 500 MG, DAILY (1/D)
     Route: 048
     Dates: start: 20060523
  6. LOXONIN [Concomitant]
     Indication: PAIN
     Dosage: 60 MG, 2/D
     Route: 048
     Dates: start: 20060819
  7. SELBEX [Concomitant]
     Indication: ABDOMINAL PAIN UPPER
     Dosage: 50 MG, 2/D
     Route: 048
     Dates: start: 20060819
  8. DEPAS [Concomitant]
     Indication: INSOMNIA
     Dosage: 0.5 MG, DAILY (1/D)
     Route: 048
     Dates: start: 20060822
  9. NASEA [Concomitant]
     Indication: PROPHYLAXIS
     Dosage: 0.3 MG, OTHER
     Route: 042
     Dates: start: 20060919, end: 20061003

REACTIONS (8)
  - COUGH [None]
  - INTERSTITIAL LUNG DISEASE [None]
  - LYMPHANGIOSIS CARCINOMATOSA [None]
  - MALIGNANT PLEURAL EFFUSION [None]
  - PERICARDIAL EFFUSION [None]
  - PLEURAL EFFUSION [None]
  - PULMONARY EMBOLISM [None]
  - SCAN WITH CONTRAST ABNORMAL [None]
